FAERS Safety Report 5853509-8 (Version None)
Quarter: 2008Q3

REPORT INFORMATION
  Report Type: 
  Country: None (occurrence: None)
  Receive Date: 20080822
  Receipt Date: 20080818
  Transmission Date: 20090109
  Serious: Yes (Other)
  Sender: FDA-Public Use
  Company Number: JP-SP-2008-02184

PATIENT
  Age: 69 Year
  Sex: Male

DRUGS (2)
  1. IMMUCYST [Suspect]
     Indication: MALIGNANT NEOPLASM OF RENAL PELVIS
     Dosage: UNKNOWN
     Route: 043
     Dates: start: 20070911, end: 20070911
  2. IMMUCYST [Suspect]
     Dosage: UNKNOWN
     Route: 043
     Dates: start: 20070911, end: 20070911

REACTIONS (3)
  - GRANULOMA [None]
  - OFF LABEL USE [None]
  - PULMONARY GRANULOMA [None]
